FAERS Safety Report 8047034-6 (Version None)
Quarter: 2012Q1

REPORT INFORMATION
  Report Type: 
  Country: None (occurrence: None)
  Receive Date: 20120116
  Receipt Date: 20120111
  Transmission Date: 20120608
  Serious: Yes (Hospitalization, Disabling, Other)
  Sender: FDA-Public Use
  Company Number: GB-SANOFI-AVENTIS-2011SA079270

PATIENT
  Age: 63 Year
  Sex: Male
  Weight: 112.8 kg

DRUGS (9)
  1. LANTUS [Suspect]
     Dosage: IN THE MORNING DOSE:40 UNIT(S)
     Route: 058
  2. LANTUS [Suspect]
     Dosage: DOSE:54 UNIT(S)
     Route: 058
  3. ASPIRIN [Concomitant]
     Route: 048
  4. CETIRIZINE [Concomitant]
     Route: 048
     Dates: start: 19980709
  5. OPTICLICK [Suspect]
     Indication: DEVICE THERAPY
     Dates: start: 20071227
  6. IRBESARTAN [Concomitant]
     Indication: HYPERTENSION
     Route: 048
     Dates: start: 20080727
  7. BENDROFLUMETHIAZIDE [Concomitant]
     Indication: HYPERTENSION
     Route: 048
     Dates: start: 20081117
  8. LANTUS [Suspect]
     Dosage: DOSE:58 UNIT(S)
     Route: 058
     Dates: start: 20071221
  9. SIMVASTATIN [Concomitant]
     Route: 048

REACTIONS (3)
  - CONVULSION [None]
  - EPILEPSY [None]
  - HYPOGLYCAEMIA [None]
